FAERS Safety Report 5335286-2 (Version None)
Quarter: 2007Q2

REPORT INFORMATION
  Report Type: 
  Country: None (occurrence: None)
  Receive Date: 20070525
  Receipt Date: 20070516
  Transmission Date: 20071010
  Serious: Yes (Other)
  Sender: FDA-Public Use
  Company Number: VE-PFIZER INC-2007031409

PATIENT
  Sex: Male
  Weight: 50 kg

DRUGS (4)
  1. SU-011,248 [Suspect]
     Indication: RENAL CELL CARCINOMA STAGE UNSPECIFIED
     Route: 048
  2. FUROSEMIDE [Concomitant]
     Route: 048
  3. LOSARTAN POSTASSIUM [Concomitant]
     Route: 048
     Dates: start: 20000101
  4. AMLODIPINE [Concomitant]
     Route: 048
     Dates: start: 20061201

REACTIONS (6)
  - ANAEMIA [None]
  - ASCITES [None]
  - GENERALISED OEDEMA [None]
  - OEDEMA PERIPHERAL [None]
  - PLEURAL EFFUSION [None]
  - THROMBOCYTOPENIA [None]
